FAERS Safety Report 6986244-3 (Version None)
Quarter: 2010Q3

REPORT INFORMATION
  Report Type: 
  Country: None (occurrence: None)
  Receive Date: 20100915
  Receipt Date: 20090616
  Transmission Date: 20110219
  Serious: No
  Sender: FDA-Public Use
  Company Number: US-WYE-H09776309

PATIENT
  Sex: Female
  Weight: 76.73 kg

DRUGS (4)
  1. PRISTIQ [Suspect]
     Indication: DEPRESSION
     Route: 048
     Dates: start: 20080901
  2. PRISTIQ [Suspect]
     Indication: ANXIETY
  3. BENICAR [Concomitant]
  4. WELLBUTRIN [Concomitant]

REACTIONS (3)
  - FATIGUE [None]
  - MYDRIASIS [None]
  - WEIGHT INCREASED [None]
